FAERS Safety Report 4440001-0 (Version None)
Quarter: 2004Q3

REPORT INFORMATION
  Report Type: 
  Country: None (occurrence: None)
  Receive Date: 20040831
  Receipt Date: 20040818
  Transmission Date: 20050211
  Serious: Yes (Hospitalization)
  Sender: FDA-Public Use
  Company Number: 2004AP04179

PATIENT
  Age: 35 Year
  Sex: Male
  Weight: 60 kg

DRUGS (2)
  1. ANAPEINE [Suspect]
     Indication: EPIDURAL ANAESTHESIA
     Dosage: 3-5 ML/HR
     Dates: start: 20040601, end: 20040804
  2. ANAPEINE [Suspect]
     Indication: EPIDURAL ANAESTHESIA
     Dosage: 13 ML ONCE ED
     Route: 008
     Dates: start: 20040804, end: 20040804

REACTIONS (8)
  - COMA [None]
  - CONVULSION [None]
  - DEPRESSED LEVEL OF CONSCIOUSNESS [None]
  - DRUG TOXICITY [None]
  - FEELING ABNORMAL [None]
  - HYPOAESTHESIA [None]
  - MEDICATION ERROR [None]
  - RESPIRATORY DEPRESSION [None]
